FAERS Safety Report 6706914-1 (Version None)
Quarter: 2010Q2

REPORT INFORMATION
  Report Type: 
  Country: None (occurrence: None)
  Receive Date: 20100503
  Receipt Date: 20100421
  Transmission Date: 20101027
  Serious: Yes (Other)
  Sender: FDA-Public Use
  Company Number: ES-PFIZER INC-2010032666

PATIENT
  Age: 76 Year
  Sex: Female
  Weight: 53.4 kg

DRUGS (8)
  1. SUNITINIB MALATE [Suspect]
     Indication: METASTATIC GASTRIC CANCER
     Dosage: 25 MG, 1X/DAY
     Route: 048
     Dates: start: 20100107, end: 20100312
  2. CISPLATIN [Suspect]
     Indication: METASTATIC GASTRIC CANCER
     Dosage: 121 MG, EVERY 3 WEEKS
     Route: 042
     Dates: start: 20100107, end: 20100310
  3. FLUOROURACIL [Suspect]
     Indication: METASTATIC GASTRIC CANCER
     Dosage: 4832 MG, EVERY 3 WEEKS
     Route: 042
     Dates: start: 20100107, end: 20100312
  4. OMEPRAZOLE [Concomitant]
     Indication: PROPHYLAXIS
     Dosage: 20 MG, 1X/DAY
     Route: 048
  5. SPIRIVA [Concomitant]
     Indication: ASTHMA
     Dosage: UNK UG, 1X/DAY
     Route: 055
  6. PARAPRES [Concomitant]
     Indication: HYPERTENSION
     Dosage: 16 MG, 1X/DAY
     Route: 048
  7. ZOLPIDEM [Concomitant]
     Indication: PROPHYLAXIS
     Dosage: 10 MG, 1X/DAY
     Route: 048
  8. NATECAL [Concomitant]
     Indication: SPINAL OSTEOARTHRITIS
     Dosage: 1.5 G, 1X/DAY
     Route: 048

REACTIONS (1)
  - MYOCARDIAL ISCHAEMIA [None]
